FAERS Safety Report 14139491 (Version 4)
Quarter: 2017Q4

REPORT INFORMATION
  Report Type: Spontaneous
  Country: RO (occurrence: RO)
  Receive Date: 20171028
  Receipt Date: 20171215
  Transmission Date: 20180321
  Serious: Yes (Life-Threatening, Hospitalization, Other)
  Sender: FDA-Public Use
  Company Number: RO-BAYER-2017-187397

PATIENT
  Age: 36 Year
  Sex: Female

DRUGS (1)
  1. JAYDESS [Suspect]
     Active Substance: LEVONORGESTREL
     Indication: CONTRACEPTION
     Dosage: 14 MCG/24HR, CONT
     Route: 015
     Dates: start: 20150508

REACTIONS (15)
  - Haemorrhagic anaemia [Unknown]
  - Pallor [Recovered/Resolved]
  - Somnolence [Unknown]
  - Genital haemorrhage [Unknown]
  - Drug ineffective [Unknown]
  - Amenorrhoea [Unknown]
  - Fallopian tube operation [Recovered/Resolved with Sequelae]
  - Peritoneal haemorrhage [Recovered/Resolved with Sequelae]
  - Asthenia [Recovered/Resolved]
  - Increased appetite [Unknown]
  - Ectopic pregnancy with contraceptive device [Recovered/Resolved]
  - Irritability [Unknown]
  - Abdominal pain lower [Recovered/Resolved]
  - Ruptured ectopic pregnancy [Recovered/Resolved with Sequelae]
  - Premenstrual syndrome [Unknown]

NARRATIVE: CASE EVENT DATE: 20170712
